FAERS Safety Report 14233065 (Version 1)
Quarter: 2017Q4

REPORT INFORMATION
  Report Type: Spontaneous
  Country: IT (occurrence: US)
  Receive Date: 20171128
  Receipt Date: 20171128
  Transmission Date: 20180321
  Serious: Yes (Hospitalization)
  Sender: FDA-Public Use
  Company Number: IT-LEADIANT BIOSCIENCES INC-2016STPI001026

PATIENT
  Age: 69 Year
  Sex: Female

DRUGS (5)
  1. VINCRISTINE HOSPIRA [Concomitant]
     Active Substance: VINCRISTINE
     Indication: CENTRAL NERVOUS SYSTEM LYMPHOMA
     Dosage: 1.4 MG/M2, DAYS 2 - 5
     Route: 042
     Dates: start: 20161125, end: 20161208
  2. METHOTREXATE MYLAN [Concomitant]
     Active Substance: METHOTREXATE SODIUM
     Indication: CENTRAL NERVOUS SYSTEM LYMPHOMA
     Dosage: 3.5 MG/M2, DAYS 2 TO 5
     Route: 042
     Dates: start: 20161125, end: 20161208
  3. MATULANE [Suspect]
     Active Substance: PROCARBAZINE HYDROCHLORIDE
     Indication: HODGKIN^S DISEASE
     Dosage: 100 MG/M2, QD
     Route: 048
     Dates: start: 20161125
  4. MABTHERA [Concomitant]
     Active Substance: RITUXIMAB
     Indication: CENTRAL NERVOUS SYSTEM LYMPHOMA
     Dosage: 375 MG/M2, X1
     Route: 042
     Dates: start: 20161124, end: 20161124
  5. CORTANCYL [Concomitant]
     Active Substance: PREDNISONE
     Indication: CENTRAL NERVOUS SYSTEM LYMPHOMA
     Dosage: 60 MG, QD
     Route: 048
     Dates: start: 20161125, end: 20161129

REACTIONS (1)
  - Hepatocellular injury [Unknown]

NARRATIVE: CASE EVENT DATE: 20161128
